FAERS Safety Report 7712893-0 (Version None)
Quarter: 2011Q3

REPORT INFORMATION
  Report Type: 
  Country: None (occurrence: None)
  Receive Date: 20110826
  Receipt Date: 20110822
  Transmission Date: 20111222
  Serious: Yes (Hospitalization)
  Sender: FDA-Public Use
  Company Number: PHHY2011US05963

PATIENT
  Sex: Male

DRUGS (3)
  1. EXTAVIA [Suspect]
     Indication: MULTIPLE SCLEROSIS
     Dosage: 0.25 MG, QOD
     Route: 058
     Dates: start: 20100901, end: 20101201
  2. FLOMAX [Concomitant]
     Dosage: UNK UKN, UNK
  3. ALCOHOL [Suspect]
     Dosage: UNK UKN, UNK

REACTIONS (5)
  - ABASIA [None]
  - PRURITUS [None]
  - OEDEMA PERIPHERAL [None]
  - RASH GENERALISED [None]
  - INJECTION SITE SWELLING [None]
